FAERS Safety Report 7670258 (Version 5)
Quarter: 2013Q1

REPORT INFORMATION
  Report Type: Spontaneous
  Country: US (occurrence: US)
  Receive Date: 20101116
  Receipt Date: 20130225
  Transmission Date: 20140127
  Serious: Yes (Death, Other)
  Sender: FDA-Public Use
  Company Number: US-JNJFOC-20101103087

PATIENT
  Age: 64 Year
  Sex: Female

DRUGS (7)
  1. DOXORUBICIN HYDROCHLORIDE (DOXIL) [Suspect]
     Indication: OVARIAN EPITHELIAL CANCER RECURRENT
     Dosage: CUMULATIVE DOSE 1680 MG
     Route: 042
     Dates: start: 200601
  2. DOXORUBICIN HYDROCHLORIDE (DOXIL) [Suspect]
     Indication: OVARIAN EPITHELIAL CANCER RECURRENT
     Dosage: 30/M2
     Route: 042
     Dates: start: 200309, end: 20031124
  3. DOXORUBICIN HYDROCHLORIDE (DOXIL) [Suspect]
     Indication: OVARIAN EPITHELIAL CANCER RECURRENT
     Route: 042
  4. DOXORUBICIN HYDROCHLORIDE (DOXIL) [Suspect]
     Indication: OVARIAN EPITHELIAL CANCER RECURRENT
     Dosage: CUMULATIVE DOSE 1680 MG
     Route: 042
     Dates: start: 200505, end: 200512
  5. DOXORUBICIN HYDROCHLORIDE (DOXIL) [Suspect]
     Indication: OVARIAN EPITHELIAL CANCER RECURRENT
     Dosage: CUMULATIVE DOSE 1680 MG
     Route: 042
     Dates: start: 200501, end: 200504
  6. DOXORUBICIN HYDROCHLORIDE (DOXIL) [Suspect]
     Indication: OVARIAN EPITHELIAL CANCER RECURRENT
     Dosage: CUMULATIVE DOSE 1680 MG;MAINTENANCE THERAPY; AS A 1-H INFUSION IN 250 CM^3- 5% DEXTROSE IN WATER.
     Route: 042
     Dates: start: 2004
  7. CARBOPLATIN [Suspect]
     Indication: OVARIAN EPITHELIAL CANCER
     Dosage: AREA UNDER THE CURVE- 5
     Route: 065
     Dates: start: 200309, end: 20031124

REACTIONS (7)
  - Death [Fatal]
  - Renal failure [Unknown]
  - Nephrosclerosis [Unknown]
  - Hydronephrosis [Unknown]
  - Blood creatinine increased [Unknown]
  - Ovarian epithelial cancer recurrent [Unknown]
  - Hypertension [Unknown]
